FAERS Safety Report 5118032-7 (Version None)
Quarter: 2006Q3

REPORT INFORMATION
  Report Type: 
  Country: None (occurrence: None)
  Receive Date: 20060929
  Receipt Date: 20060927
  Transmission Date: 20061208
  Serious: Yes (Death)
  Sender: FDA-Public Use
  Company Number: DE-BOEHRINGER INGELHEIM PHARMACEUTICALS, INC.-2006-DE-05149DE

PATIENT
  Sex: Male

DRUGS (9)
  1. SPIRIVA [Suspect]
     Indication: CHRONIC OBSTRUCTIVE PULMONARY DISEASE
     Route: 055
     Dates: start: 20060404
  2. FENTANYL [Concomitant]
     Indication: SPINAL FRACTURE
  3. OMEPRAZOLE [Concomitant]
     Indication: GASTROINTESTINAL HAEMORRHAGE
  4. GLIBENCLAMID [Concomitant]
     Indication: DIABETES MELLITUS
  5. SIMVASTATIN [Concomitant]
     Indication: HYPERLIPIDAEMIA
  6. FUROSEMIDE [Concomitant]
     Indication: COR PULMONALE
  7. ACTONEL [Concomitant]
     Indication: OSTEOPOROSIS
  8. ASPIRIN [Concomitant]
     Indication: CORONARY ARTERY DISEASE
  9. VERAHEXAL [Concomitant]
     Indication: CORONARY ARTERY DISEASE

REACTIONS (1)
  - COR PULMONALE [None]
